FAERS Safety Report 12287676 (Version 1)
Quarter: 2016Q2

REPORT INFORMATION
  Report Type: Spontaneous
  Country: FR (occurrence: FR)
  Receive Date: 20160420
  Receipt Date: 20160420
  Transmission Date: 20160815
  Serious: Yes (Hospitalization)
  Sender: FDA-Public Use
  Company Number: FR-009507513-1604FRA011243

PATIENT
  Age: 81 Year
  Sex: Male

DRUGS (9)
  1. MANTADIX [Suspect]
     Active Substance: AMANTADINE HYDROCHLORIDE
     Indication: PARKINSON^S DISEASE
     Dosage: 1 DF, TID
     Route: 048
  2. SINEMET L.P. [Suspect]
     Active Substance: CARBIDOPA\LEVODOPA
     Indication: PARKINSON^S DISEASE
     Dosage: 3 DF, QD
     Route: 048
  3. MODOPAR [Suspect]
     Active Substance: BENSERAZIDE HYDROCHLORIDE\LEVODOPA
     Indication: PARKINSON^S DISEASE
     Dosage: 62.5 MG, QD
     Route: 048
  4. ARTOTEC [Concomitant]
     Active Substance: DICLOFENAC SODIUM\MISOPROSTOL
  5. MODOPAR [Suspect]
     Active Substance: BENSERAZIDE HYDROCHLORIDE\LEVODOPA
     Indication: PARKINSON^S DISEASE
     Dosage: 125 MG, QD
     Route: 048
  6. KARDEGIC [Concomitant]
     Active Substance: ASPIRIN LYSINE
  7. LIPANTHYL [Concomitant]
     Active Substance: FENOFIBRATE
  8. REQUIP LP [Suspect]
     Active Substance: ROPINIROLE HYDROCHLORIDE
     Indication: PARKINSON^S DISEASE
     Dosage: 4 MG, QD
     Route: 048
  9. OMEPRAZOLE. [Concomitant]
     Active Substance: OMEPRAZOLE

REACTIONS (3)
  - Hallucination [Unknown]
  - Aggression [Unknown]
  - Abnormal behaviour [Unknown]

NARRATIVE: CASE EVENT DATE: 20160401
